FAERS Safety Report 7337259-7 (Version None)
Quarter: 2011Q1

REPORT INFORMATION
  Report Type: 
  Country: None (occurrence: None)
  Receive Date: 20110308
  Receipt Date: 20110224
  Transmission Date: 20110831
  Serious: Yes (Hospitalization)
  Sender: FDA-Public Use
  Company Number: GR-JNJFOC-20110206068

PATIENT
  Age: 52 Year
  Sex: Female
  Weight: 78 kg

DRUGS (3)
  1. GOLIMUMAB [Suspect]
     Indication: RHEUMATOID ARTHRITIS
     Dosage: 6TH DOSE OUT OF 6 IN SERIES
     Route: 058
  2. FOLIC ACID [Concomitant]
  3. PREZOLON [Suspect]
     Indication: PRODUCT USED FOR UNKNOWN INDICATION

REACTIONS (1)
  - MYOCARDIAL INFARCTION [None]
